FAERS Safety Report 24858748 (Version 1)
Quarter: 2025Q1

REPORT INFORMATION
  Report Type: Spontaneous
  Country: US (occurrence: US)
  Receive Date: 20250118
  Receipt Date: 20250118
  Transmission Date: 20250409
  Serious: No
  Sender: AUROBINDO
  Company Number: US-AUROBINDO-AUR-APL-2024-020552

PATIENT
  Age: 21 Year
  Sex: Female
  Weight: 56.2 kg

DRUGS (1)
  1. LEVONORGESTREL [Suspect]
     Active Substance: LEVONORGESTREL
     Indication: Post coital contraception
     Route: 065
     Dates: start: 20240415

REACTIONS (2)
  - Muscle spasms [Unknown]
  - Product solubility abnormal [Unknown]
